FAERS Safety Report 5742511-2 (Version None)
Quarter: 2008Q2

REPORT INFORMATION
  Report Type: 
  Country: None (occurrence: None)
  Receive Date: 20080519
  Receipt Date: 20080515
  Transmission Date: 20081010
  Serious: Yes (Other)
  Sender: FDA-Public Use
  Company Number: A0670613A

PATIENT
  Age: 66 Year
  Sex: Female

DRUGS (1)
  1. ALLI [Suspect]
     Indication: WEIGHT LOSS DIET
     Route: 048
     Dates: start: 20070616

REACTIONS (22)
  - ABDOMINAL PAIN UPPER [None]
  - CATARACT [None]
  - DIZZINESS [None]
  - DRUG INEFFECTIVE [None]
  - FAECAL INCONTINENCE [None]
  - FEAR [None]
  - FLATULENCE [None]
  - FOOD CRAVING [None]
  - GASTROINTESTINAL DISORDER [None]
  - HEADACHE [None]
  - MALAISE [None]
  - MUSCULOSKELETAL PAIN [None]
  - MYALGIA [None]
  - NAUSEA [None]
  - NECK PAIN [None]
  - NERVE COMPRESSION [None]
  - RECTAL DISCHARGE [None]
  - SEASONAL ALLERGY [None]
  - SINUS HEADACHE [None]
  - SINUSITIS [None]
  - WEIGHT FLUCTUATION [None]
  - WEIGHT INCREASED [None]
